FAERS Safety Report 4470996-0 (Version None)
Quarter: 2004Q4

REPORT INFORMATION
  Report Type: 
  Country: None (occurrence: None)
  Receive Date: 20041011
  Receipt Date: 20041006
  Transmission Date: 20050328
  Serious: Yes (Life-Threatening, Hospitalization, Disabling)
  Sender: FDA-Public Use
  Company Number: US-MERCK-0410USA00947

PATIENT
  Age: 77 Year
  Sex: Female

DRUGS (7)
  1. [THERAPY UNSPECIFIED] [Concomitant]
     Indication: HYPERTENSION
     Route: 065
  2. [THERAPY UNSPECIFIED] [Concomitant]
     Indication: DIABETES MELLITUS NON-INSULIN-DEPENDENT
     Route: 065
  3. LOTREL [Concomitant]
     Route: 065
  4. CELEBREX [Concomitant]
     Route: 065
  5. PLAVIX [Concomitant]
     Route: 065
  6. VIOXX [Suspect]
     Indication: ARTHRITIS
     Route: 048
     Dates: start: 20010721, end: 20020601
  7. DIOVAN [Concomitant]
     Route: 065

REACTIONS (10)
  - AMNESIA [None]
  - BLINDNESS [None]
  - BLOOD PRESSURE ABNORMAL [None]
  - BLOOD PRESSURE INCREASED [None]
  - CATARACT [None]
  - CEREBROVASCULAR ACCIDENT [None]
  - DRUG INTOLERANCE [None]
  - HOT FLUSH [None]
  - PSYCHOMOTOR HYPERACTIVITY [None]
  - VISUAL DISTURBANCE [None]
